FAERS Safety Report 9692546 (Version 1)
Quarter: 2013Q4

REPORT INFORMATION
  Report Type: Spontaneous
  Country: US (occurrence: US)
  Receive Date: 20131118
  Receipt Date: 20131118
  Transmission Date: 20140711
  Serious: Yes (Hospitalization, Other)
  Sender: FDA-Public Use
  Company Number: US-BAYER-2013-138158

PATIENT
  Age: 32 Year
  Sex: Female

DRUGS (32)
  1. YASMIN [Suspect]
  2. OCELLA [Suspect]
  3. NAPROXEN [Concomitant]
     Dosage: 500 MG, UNK
     Route: 048
     Dates: start: 20091013
  4. MAXALT [Concomitant]
     Dosage: 10 MG, UNK
     Route: 048
     Dates: start: 20091017
  5. ZANAFLEX [Concomitant]
     Dosage: 4 MG, LONG TERM USE
     Route: 048
  6. LYRICA [Concomitant]
     Dosage: 200 MG, LONG TERM USE
     Route: 048
  7. KEPPRA [Concomitant]
     Dosage: 500 MG, LONG TERM USE
     Route: 048
  8. CREON [PANCREATIN] [Concomitant]
     Dosage: 12,000
     Route: 048
     Dates: start: 20091023, end: 20091212
  9. DICYCLOMINE [Concomitant]
     Dosage: 20 MG, LONG TERM USE
     Route: 048
  10. DIAZEPAM [Concomitant]
     Dosage: 5 MG, UNK
     Route: 048
     Dates: start: 20091106
  11. LITHIUM CARBONATE [Concomitant]
     Dosage: 300 MG, LONG TERM USE
     Route: 048
  12. SEROQUEL [Concomitant]
     Dosage: 300 MG, LONG TERM USE
     Route: 048
  13. TOPROL XL [Concomitant]
     Dosage: 50 MG, LONG TERM USE
     Route: 048
  14. MIRTAZAPINE [Concomitant]
     Dosage: 30 MG, UNK
     Route: 048
     Dates: start: 20091124
  15. MIRTAZAPINE [Concomitant]
     Dosage: 30 MG, UNK
     Route: 048
     Dates: start: 20091127
  16. PROCHLORPERAZINE [Concomitant]
     Dosage: 10 MG, UNK
     Route: 048
     Dates: start: 20091201
  17. HYDROCODONE W/APAP [Concomitant]
     Dosage: 7.5/500 MG
     Route: 048
     Dates: start: 20091209
  18. ALPRAZOLAM [Concomitant]
     Dosage: 1 MG, UNK
     Route: 048
     Dates: start: 20091229
  19. ARIXTRA [Concomitant]
     Dosage: 7.5 MG, UNK
     Route: 058
     Dates: start: 20091229
  20. TOPOMAX [Concomitant]
     Dosage: 200 MG, LONG TERM USE
     Route: 048
  21. NEXIUM [Concomitant]
     Dosage: 40 MG, UNK
     Route: 048
     Dates: start: 20100102
  22. BENTYL [Concomitant]
     Dosage: 20 MG WITH MEALS
     Route: 048
     Dates: start: 20100102
  23. XANAX [Concomitant]
     Indication: ANXIETY
     Dosage: UNK UNK, TID PRN
     Route: 048
     Dates: start: 20100102
  24. COMPAZINE [Concomitant]
     Indication: NAUSEA
     Dosage: 10 MG, PRN
     Route: 048
     Dates: start: 20100102
  25. REMERON [Concomitant]
  26. HYDROCORTISONE [Concomitant]
  27. PEPCID [Concomitant]
  28. SENNA [Concomitant]
  29. COLACE [Concomitant]
  30. VANCOMYCIN [Concomitant]
  31. INSULIN [Concomitant]
  32. DILAUDID [Concomitant]

REACTIONS (5)
  - Axillary vein thrombosis [None]
  - Deep vein thrombosis [None]
  - Thrombophlebitis superficial [None]
  - Thrombophlebitis superficial [None]
  - Transient ischaemic attack [None]
